FAERS Safety Report 7776758-0 (Version None)
Quarter: 2011Q3

REPORT INFORMATION
  Report Type: 
  Country: None (occurrence: None)
  Receive Date: 20110926
  Receipt Date: 20110426
  Transmission Date: 20111222
  Serious: No
  Sender: FDA-Public Use
  Company Number: US-BAYER-2011-037307

PATIENT
  Sex: Female
  Weight: 120 kg

DRUGS (3)
  1. ALEVE (CAPLET) [Suspect]
     Indication: HEADACHE
     Dosage: 2 DF, ONCE
     Dates: start: 20110425
  2. MIDOL MENSTRUAL COMPLETE CAPLETS [Suspect]
     Indication: DYSMENORRHOEA
     Dosage: 2 DF, PRN
     Route: 048
  3. CENTRUM [Concomitant]
     Dosage: UNK

REACTIONS (2)
  - NO ADVERSE EVENT [None]
  - RESTLESS LEGS SYNDROME [None]
